FAERS Safety Report 7792196-9 (Version None)
Quarter: 2011Q4

REPORT INFORMATION
  Report Type: 
  Country: None (occurrence: None)
  Receive Date: 20111003
  Receipt Date: 20111003
  Transmission Date: 20120403
  Serious: Yes (Hospitalization)
  Sender: FDA-Public Use
  Company Number: None

PATIENT
  Age: 36 Year
  Sex: Female
  Weight: 62.595 kg

DRUGS (1)
  1. SYNAREL [Suspect]
     Dates: start: 20110628, end: 20110930

REACTIONS (3)
  - MEMORY IMPAIRMENT [None]
  - FATIGUE [None]
  - PAIN [None]
